FAERS Safety Report 8289994-4 (Version None)
Quarter: 2012Q2

REPORT INFORMATION
  Report Type: 
  Country: None (occurrence: None)
  Receive Date: 20120417
  Receipt Date: 20120416
  Transmission Date: 20120825
  Serious: No
  Sender: FDA-Public Use
  Company Number: US-PFIZER INC-2012094021

PATIENT
  Age: 50 Year
  Sex: Female
  Weight: 55.329 kg

DRUGS (3)
  1. TRILEPTAL [Suspect]
     Indication: BIPOLAR DISORDER
     Dosage: UNK
  2. LISINOPRIL [Concomitant]
     Indication: HYPERTENSION
     Dosage: UNK
  3. GEODON [Suspect]
     Indication: BIPOLAR DISORDER
     Dosage: 20 MG, DAILY
     Dates: start: 20120301

REACTIONS (2)
  - MUSCLE TWITCHING [None]
  - BLEPHAROSPASM [None]
